FAERS Safety Report 4765708-7 (Version None)
Quarter: 2005Q3

REPORT INFORMATION
  Report Type: 
  Country: None (occurrence: None)
  Receive Date: 20050906
  Receipt Date: 20050818
  Transmission Date: 20060218
  Serious: Yes (Hospitalization)
  Sender: FDA-Public Use
  Company Number: US_0508121150

PATIENT
  Age: 72 Year
  Sex: Female

DRUGS (1)
  1. CEFACLOR [Suspect]
     Indication: SKIN ULCER
     Dates: start: 20020108

REACTIONS (13)
  - ACUTE GENERALISED EXANTHEMATOUS PUSTULOSIS [None]
  - BACTERIAL INFECTION [None]
  - CULTURE POSITIVE [None]
  - CULTURE URINE POSITIVE [None]
  - CULTURE WOUND POSITIVE [None]
  - CYSTITIS HAEMORRHAGIC [None]
  - ENTEROBACTER INFECTION [None]
  - ESCHERICHIA URINARY TRACT INFECTION [None]
  - LEUKOCYTOSIS [None]
  - NEUTROPHIL COUNT INCREASED [None]
  - RASH ERYTHEMATOUS [None]
  - SKIN ULCER [None]
  - STAPHYLOCOCCAL INFECTION [None]
